FAERS Safety Report 19325954 (Version 2)
Quarter: 2021Q2

REPORT INFORMATION
  Report Type: Spontaneous
  Country: PT (occurrence: PT)
  Receive Date: 20210528
  Receipt Date: 20210610
  Transmission Date: 20210717
  Serious: Yes (Life-Threatening, Hospitalization, Other)
  Sender: FDA-Public Use
  Company Number: PT-PFIZER INC-2021545708

PATIENT
  Age: 24 Year
  Sex: Female

DRUGS (4)
  1. CEFTRIAXONE. [Suspect]
     Active Substance: CEFTRIAXONE
     Indication: LEMIERRE SYNDROME
     Dosage: UNK
  2. AZITHROMYCIN ANHYDROUS. [Suspect]
     Active Substance: AZITHROMYCIN ANHYDROUS
     Indication: LEMIERRE SYNDROME
     Dosage: UNK
  3. IBUPROFEN. [Suspect]
     Active Substance: IBUPROFEN
     Indication: PHARYNGOTONSILLITIS
     Dosage: UNK
  4. PIPERACILLIN/TAZOBACTAM [Suspect]
     Active Substance: PIPERACILLIN SODIUM\TAZOBACTAM SODIUM
     Indication: LEMIERRE SYNDROME
     Dosage: UNK

REACTIONS (16)
  - Acute kidney injury [Unknown]
  - Multiple organ dysfunction syndrome [Unknown]
  - C-reactive protein increased [Unknown]
  - Tonsillitis [Not Recovered/Not Resolved]
  - Leukocytosis [Not Recovered/Not Resolved]
  - Lemierre syndrome [Unknown]
  - Haemoptysis [Unknown]
  - Sepsis [Unknown]
  - Renal tubular dysfunction [Unknown]
  - Drug ineffective [Recovered/Resolved]
  - Condition aggravated [Recovered/Resolved]
  - Systemic inflammatory response syndrome [Unknown]
  - Acute respiratory distress syndrome [Unknown]
  - Hepatomegaly [Unknown]
  - Cholestasis [Unknown]
  - Thrombocytopenia [Not Recovered/Not Resolved]
